FAERS Safety Report 4309944-2 (Version None)
Quarter: 2004Q1

REPORT INFORMATION
  Report Type: 
  Country: None (occurrence: None)
  Receive Date: 20040301
  Receipt Date: 20031023
  Transmission Date: 20041129
  Serious: Yes (Hospitalization)
  Sender: FDA-Public Use
  Company Number: 2003AP000366

PATIENT
  Age: 57 Year
  Sex: Female
  Weight: 57.1532 kg

DRUGS (7)
  1. BUTORPHANOL TARTRATE NASAL SPRAY [Suspect]
     Indication: MIGRAINE
     Dosage: 2 MG; AS NEEDED; NASAL
     Route: 045
     Dates: start: 20030926, end: 20030926
  2. THYROID TAB [Concomitant]
  3. PROZAC [Concomitant]
  4. TYLENOL (CAPLET) [Concomitant]
  5. KLONOPIN [Concomitant]
  6. KEPPRA [Concomitant]
  7. DESYREL [Concomitant]

REACTIONS (8)
  - AMNESIA [None]
  - ANXIETY [None]
  - COMMUNICATION DISORDER [None]
  - DRUG INEFFECTIVE [None]
  - HEADACHE [None]
  - PAROSMIA [None]
  - PERSONALITY CHANGE [None]
  - PHARMACEUTICAL PRODUCT COMPLAINT [None]
